FAERS Safety Report 7735573-4 (Version None)
Quarter: 2011Q3

REPORT INFORMATION
  Report Type: 
  Country: None (occurrence: None)
  Receive Date: 20110907
  Receipt Date: 20110823
  Transmission Date: 20111222
  Serious: Yes (Other)
  Sender: FDA-Public Use
  Company Number: JP-WATSON-2011-14085

PATIENT
  Age: 62 Year
  Sex: Female

DRUGS (8)
  1. DANAZOL [Suspect]
     Indication: B-CELL LYMPHOMA
  2. PREDNISOLONE [Suspect]
     Indication: IDIOPATHIC THROMBOCYTOPENIC PURPURA
     Dosage: 1 MG/M2, UNK
  3. CYCLOPHOSPHAMIDE [Suspect]
     Indication: B-CELL LYMPHOMA
     Dosage: UNK
  4. ADRIAMYCIN PFS [Suspect]
     Indication: B-CELL LYMPHOMA
     Dosage: UNK
  5. PREDNISOLONE [Suspect]
     Indication: THROMBOCYTOPENIA
  6. PREDNISOLONE [Suspect]
     Indication: B-CELL LYMPHOMA
     Dosage: 0.5 MG/KG, DAILY
     Route: 048
  7. RITUXIMAB [Suspect]
     Indication: IDIOPATHIC THROMBOCYTOPENIC PURPURA
     Dosage: 375 MG/M2, 1/WEEK X 4
     Dates: start: 20090801
  8. VINCRISTINE [Suspect]
     Indication: B-CELL LYMPHOMA
     Dosage: UNK

REACTIONS (5)
  - SCEDOSPORIUM INFECTION [None]
  - LYMPHANGITIS [None]
  - GASTROINTESTINAL HAEMORRHAGE [None]
  - PNEUMOCYSTIS JIROVECI PNEUMONIA [None]
  - HYPERGLYCAEMIA [None]
